FAERS Safety Report 7679581-0 (Version None)
Quarter: 2011Q3

REPORT INFORMATION
  Report Type: 
  Country: None (occurrence: None)
  Receive Date: 20110809
  Receipt Date: 20110715
  Transmission Date: 20111222
  Serious: Yes (Other)
  Sender: FDA-Public Use
  Company Number: M1103356

PATIENT
  Age: 53 Year
  Sex: Female

DRUGS (1)
  1. ESTRADIOL [Suspect]
     Indication: OESTROGEN REPLACEMENT THERAPY
     Dosage: 1 MG DAILY, TOPICAL
     Route: 061
     Dates: start: 20010101

REACTIONS (7)
  - FEELING HOT [None]
  - MOOD ALTERED [None]
  - HYPERTENSION [None]
  - VARICOSE VEIN [None]
  - THYROID DISORDER [None]
  - BLOOD CHOLESTEROL ABNORMAL [None]
  - DISTURBANCE IN ATTENTION [None]
